FAERS Safety Report 7734535-0 (Version None)
Quarter: 2011Q3

REPORT INFORMATION
  Report Type: 
  Country: None (occurrence: None)
  Receive Date: 20110907
  Receipt Date: 20110830
  Transmission Date: 20111222
  Serious: Yes (Other)
  Sender: FDA-Public Use
  Company Number: US-GLAXOSMITHKLINE-A0942859A

PATIENT
  Age: 59 Year
  Sex: Male

DRUGS (2)
  1. NORVASC [Concomitant]
  2. JALYN [Suspect]
     Indication: HAEMORRHAGE URINARY TRACT
     Route: 048

REACTIONS (4)
  - SWELLING FACE [None]
  - EYE DISORDER [None]
  - SKIN EXFOLIATION [None]
  - LIVER FUNCTION TEST ABNORMAL [None]
